FAERS Safety Report 7280473-X (Version None)
Quarter: 2011Q1

REPORT INFORMATION
  Report Type: 
  Country: None (occurrence: None)
  Receive Date: 20110208
  Receipt Date: 20110203
  Transmission Date: 20110831
  Serious: Yes (Hospitalization, Other)
  Sender: FDA-Public Use
  Company Number: US-PFIZER INC-2010071532

PATIENT
  Sex: Female

DRUGS (4)
  1. NORVASC [Concomitant]
     Indication: HYPERTENSION
     Dosage: UNK
     Dates: start: 20020101, end: 20090101
  2. CELEXA [Concomitant]
     Indication: DEPRESSION
     Dosage: UNK
     Dates: start: 19980501
  3. CHANTIX [Suspect]
     Indication: SMOKING CESSATION THERAPY
     Dosage: STARTING PACK
     Dates: start: 20070701, end: 20080501
  4. ADDERALL 10 [Concomitant]
     Indication: ATTENTION DEFICIT/HYPERACTIVITY DISORDER
     Dosage: UNK
     Dates: start: 20060101, end: 20091201

REACTIONS (9)
  - ANXIETY [None]
  - CONFUSIONAL STATE [None]
  - SUICIDE ATTEMPT [None]
  - DEPRESSION [None]
  - INTENTIONAL OVERDOSE [None]
  - FEELING OF DESPAIR [None]
  - MOOD SWINGS [None]
  - AMNESIA [None]
  - FATIGUE [None]
